FAERS Safety Report 9481827 (Version 2)
Quarter: 2013Q3

REPORT INFORMATION
  Report Type: Spontaneous
  Country: CA (occurrence: CA)
  Receive Date: 20130828
  Receipt Date: 20130828
  Transmission Date: 20140515
  Serious: Yes (Hospitalization, Other)
  Sender: FDA-Public Use
  Company Number: CA-AMGEN-KDL234463

PATIENT
  Age: 50 Year
  Sex: Male

DRUGS (8)
  1. ENBREL [Suspect]
     Indication: RHEUMATOID ARTHRITIS
     Dosage: 25 MG, 2 TIMES/WK
     Route: 058
     Dates: start: 20040609
  2. PREGABALIN [Concomitant]
     Dosage: 150 MG, BID
  3. CALCITONIN [Concomitant]
     Dosage: 200 IU, BID
  4. HYDROMORPHONE [Concomitant]
     Dosage: 2 MG, BID
  5. DICLOFENAC SODIUM [Concomitant]
     Dosage: 75 MG, BID
  6. PREDNISONE [Concomitant]
     Dosage: 10 MG, BID
  7. LEFLUNOMIDE [Concomitant]
     Dosage: 20 MG, QD
  8. PANTOLOC [Concomitant]
     Dosage: 40 MG, QD

REACTIONS (20)
  - Multiple sclerosis [Unknown]
  - Post procedural haemorrhage [Unknown]
  - Thrombosis [Unknown]
  - Diplegia [Unknown]
  - Hip arthroplasty [Unknown]
  - Implant site necrosis [Unknown]
  - Bacterial infection [Unknown]
  - Abasia [Unknown]
  - Wheelchair user [Not Recovered/Not Resolved]
  - Nephrolithiasis [Unknown]
  - Nerve compression [Unknown]
  - Arthralgia [Unknown]
  - Pain in extremity [Unknown]
  - Contusion [Unknown]
  - Injection site bruising [Unknown]
  - Cellulitis [Unknown]
  - Synovectomy [Unknown]
  - Post procedural haematoma [Unknown]
  - Hip fracture [Unknown]
  - Rheumatoid arthritis [Unknown]
